FAERS Safety Report 25274567 (Version 2)
Quarter: 2025Q2

REPORT INFORMATION
  Report Type: Spontaneous
  Country: JP (occurrence: JP)
  Receive Date: 20250506
  Receipt Date: 20250523
  Transmission Date: 20250716
  Serious: Yes (Hospitalization)
  Sender: PFIZER
  Company Number: JP-PFIZER INC-PV202500052894

PATIENT
  Sex: Female

DRUGS (14)
  1. ELREXFIO [Suspect]
     Active Substance: ELRANATAMAB-BCMM
     Indication: Plasma cell myeloma
     Route: 058
  2. ELREXFIO [Suspect]
     Active Substance: ELRANATAMAB-BCMM
     Route: 058
     Dates: start: 20250424
  3. ESOMEPRAZOLE NIPRO [Concomitant]
     Dosage: 20 MG, 1X/DAY, AFTER BREAKFAST
     Dates: start: 20250424
  4. SPIRONOLACTONE [Concomitant]
     Active Substance: SPIRONOLACTONE
     Dosage: 25 MG, 1X/DAY, AFTER BREAKFAST
     Dates: start: 20250424
  5. ACYCLOVIR [Concomitant]
     Active Substance: ACYCLOVIR
     Dosage: 200 MG, 1X/DAY, AFTER BREAKFAST
     Dates: start: 20250424
  6. LEVOTHYROXINE SODIUM [Concomitant]
     Active Substance: LEVOTHYROXINE SODIUM
     Dosage: 25 UG, 1X/DAY, AFTER BREAKFAST
     Dates: start: 20250424
  7. METHYLCOBALAMIN [Concomitant]
     Active Substance: METHYLCOBALAMIN
     Dosage: 500 UG, 1X/DAY, AFTER BREAKFAST
     Dates: start: 20250424
  8. PREGABALIN [Concomitant]
     Active Substance: PREGABALIN
     Dosage: 25 MG, 1X/DAY, AFTER DINNER
     Dates: start: 20250424
  9. TOLVAPTAN OD OTSUKA [Concomitant]
     Dosage: 7.5 MG, 1X/DAY, AFTER BREAKFAST
     Dates: start: 20250424
  10. SULFAMETHOXAZOLE\TRIMETHOPRIM [Concomitant]
     Active Substance: SULFAMETHOXAZOLE\TRIMETHOPRIM
     Dosage: 2 DF, 1X/DAY, AFTER BREAKFAST
     Dates: start: 20250424
  11. AZOSEMIDE [Concomitant]
     Active Substance: AZOSEMIDE
     Dosage: 30 MG, 1X/DAY, AFTER BREAKFAST
     Dates: start: 20250424
  12. AMITIZA [Concomitant]
     Active Substance: LUBIPROSTONE
     Dosage: 12 UG, 1X/DAY, AFTER BREAKFAST
     Dates: start: 20250424
  13. SENNOSIDE SAWAI [Concomitant]
     Indication: Constipation
     Dates: start: 20250424
  14. LEVOFLOXACIN [Concomitant]
     Active Substance: LEVOFLOXACIN
     Dosage: 250 MG, 1X/DAY, AFTER BREAKFAST

REACTIONS (1)
  - Pneumonia [Recovering/Resolving]

NARRATIVE: CASE EVENT DATE: 20250501
